FAERS Safety Report 6443845-9 (Version None)
Quarter: 2009Q4

REPORT INFORMATION
  Report Type: 
  Country: None (occurrence: None)
  Receive Date: 20091113
  Receipt Date: 20091028
  Transmission Date: 20100525
  Serious: Yes (Hospitalization)
  Sender: FDA-Public Use
  Company Number: 426635

PATIENT
  Age: 69 Year
  Sex: Female
  Weight: 70 kg

DRUGS (5)
  1. POTASSIUM CHLORIDE [Suspect]
     Indication: DRUG USE FOR UNKNOWN INDICATION
     Dosage: INTRAVENOUS
     Route: 042
  2. SODIUM CHLORIDE [Suspect]
     Indication: DRUG USE FOR UNKNOWN INDICATION
     Dosage: 1 LITER, INTRAVENOUS
     Route: 042
  3. CISPLATIN [Suspect]
     Indication: DRUG USE FOR UNKNOWN INDICATION
     Dosage: 42 MG (3 WEEK) INTRAVENOUS
     Route: 042
  4. ONDANSETRON [Concomitant]
  5. DEXAMETHASONE TAB [Concomitant]

REACTIONS (5)
  - COUGH [None]
  - DYSPNOEA [None]
  - HYPERTENSION [None]
  - RESPIRATORY DISTRESS [None]
  - TACHYCARDIA [None]
